FAERS Safety Report 22337536 (Version 1)
Quarter: 2023Q2

REPORT INFORMATION
  Report Type: Spontaneous
  Country: GB (occurrence: GB)
  Receive Date: 20230518
  Receipt Date: 20230518
  Transmission Date: 20230722
  Serious: Yes (Life-Threatening, Other)
  Sender: FDA-Public Use
  Company Number: None

PATIENT

DRUGS (4)
  1. LAMOTRIGINE [Suspect]
     Active Substance: LAMOTRIGINE
     Indication: Product used for unknown indication
     Dosage: UNK, TAKE AS DIRECTED BY NEUROLOGY
     Route: 065
     Dates: start: 20230512, end: 20230515
  2. AMOXICILLIN [Concomitant]
     Active Substance: AMOXICILLIN
     Indication: Oropharyngeal pain
     Dosage: 1 DF, TID, ONE TO BE TAKEN THREE TIMES A DAY
     Route: 065
     Dates: start: 20230509
  3. LAMOTRIGINE [Concomitant]
     Active Substance: LAMOTRIGINE
     Indication: Product used for unknown indication
     Dosage: UNK, TAKE AS DIRECTED BY NEUROLOGY
     Route: 065
     Dates: start: 20230512, end: 20230515
  4. NAPROXEN [Concomitant]
     Active Substance: NAPROXEN
     Indication: Oropharyngeal pain
     Dosage: UNK UNK, TID,ONE TO BE TAKEN THREE TIMES A DAY WITH FOOD
     Route: 065
     Dates: start: 20230510

REACTIONS (1)
  - Stevens-Johnson syndrome [Unknown]
